FAERS Safety Report 24183603 (Version 1)
Quarter: 2024Q3

REPORT INFORMATION
  Report Type: Spontaneous
  Country: US (occurrence: None)
  Receive Date: 20240806
  Receipt Date: 20240806
  Transmission Date: 20241017
  Serious: No
  Sender: Public
  Company Number: None

PATIENT
  Age: 79 Year
  Sex: Female
  Weight: 89.1 kg

DRUGS (1)
  1. GAMUNEX-C [Suspect]
     Active Substance: HUMAN IMMUNOGLOBULIN G
     Dosage: FREQUENCY : DAILY;?
     Dates: start: 20240718, end: 20240722

REACTIONS (1)
  - Swelling face [None]

NARRATIVE: CASE EVENT DATE: 20240727
